FAERS Safety Report 24794662 (Version 1)
Quarter: 2024Q4

REPORT INFORMATION
  Report Type: Spontaneous
  Country: US (occurrence: None)
  Receive Date: 20241230
  Receipt Date: 20241230
  Transmission Date: 20250115
  Serious: Yes (Disabling)
  Sender: Public
  Company Number: None

PATIENT
  Age: 35 Year
  Sex: Female
  Weight: 58.5 kg

DRUGS (3)
  1. XEOMIN [Suspect]
     Active Substance: INCOBOTULINUMTOXINA
     Indication: Skin wrinkling
     Dosage: OTHER QUANTITY : 12 UNITS;?
     Route: 030
     Dates: start: 20240709, end: 20240709
  2. IRON [Concomitant]
     Active Substance: IRON
  3. COD LIVER OIL [Concomitant]
     Active Substance: COD LIVER OIL

REACTIONS (13)
  - Headache [None]
  - Head discomfort [None]
  - Ocular hyperaemia [None]
  - Dizziness [None]
  - Nausea [None]
  - Anxiety [None]
  - Panic attack [None]
  - Alopecia [None]
  - Muscular weakness [None]
  - Dry mouth [None]
  - Insomnia [None]
  - Dysphagia [None]
  - Ear congestion [None]

NARRATIVE: CASE EVENT DATE: 20240709
